FAERS Safety Report 6320902-9 (Version None)
Quarter: 2009Q3

REPORT INFORMATION
  Report Type: 
  Country: None (occurrence: None)
  Receive Date: 20090822
  Receipt Date: 20081216
  Transmission Date: 20100115
  Serious: No
  Sender: FDA-Public Use
  Company Number: US-ABBOTT-08P-163-0493688-00

PATIENT
  Sex: Female

DRUGS (9)
  1. NIASPAN [Suspect]
     Indication: HIGH DENSITY LIPOPROTEIN DECREASED
     Dosage: EVERY NIGHT
     Dates: start: 20081121
  2. NIASPAN [Suspect]
     Indication: LOW DENSITY LIPOPROTEIN INCREASED
  3. ASPIRIN [Concomitant]
     Indication: DRUG USE FOR UNKNOWN INDICATION
     Dosage: 81 MG THE FIRST NIGHT
     Route: 048
  4. ASPIRIN [Concomitant]
     Dosage: 81 MG X 3 ON THE SECOND NIGHT
     Route: 048
  5. ASPIRIN [Concomitant]
     Dosage: 81 MG X 2
     Route: 048
  6. BENADRYL [Concomitant]
     Indication: DRUG USE FOR UNKNOWN INDICATION
     Dosage: 25 MG ON SECOND NIGHT AND AFTER THAT
     Route: 048
  7. FEMARA [Concomitant]
     Indication: BREAST CANCER
     Dosage: SIDE EFFECTS ELEVATED CHOLESTEROL LEVELS
     Route: 048
  8. LOVAZA [Concomitant]
     Indication: DRUG USE FOR UNKNOWN INDICATION
     Route: 048
  9. VAGINAL HORMONES [Concomitant]
     Indication: DRUG USE FOR UNKNOWN INDICATION

REACTIONS (3)
  - CHILLS [None]
  - FLUSHING [None]
  - PRURITUS [None]
